FAERS Safety Report 8291993-3 (Version None)
Quarter: 2012Q2

REPORT INFORMATION
  Report Type: 
  Country: None (occurrence: None)
  Receive Date: 20120417
  Receipt Date: 20120405
  Transmission Date: 20120825
  Serious: Yes (Life-Threatening, Other)
  Sender: FDA-Public Use
  Company Number: ZA-ROCHE-1057184

PATIENT
  Age: 20 Year
  Sex: Female

DRUGS (1)
  1. ACTEMRA [Suspect]
     Indication: PRODUCT USED FOR UNKNOWN INDICATION
     Dosage: LAST DOSE PRIOR TO SAE: 22 FEB 2012
     Dates: start: 20110824

REACTIONS (3)
  - DISEASE PROGRESSION [None]
  - HISTIOCYTOSIS HAEMATOPHAGIC [None]
  - HAEMORRHAGE [None]
